FAERS Safety Report 9103308 (Version 1)
Quarter: 2013Q1

REPORT INFORMATION
  Report Type: Spontaneous
  Country: US (occurrence: US)
  Receive Date: 20130219
  Receipt Date: 20130219
  Transmission Date: 20140127
  Serious: Yes (Other)
  Sender: FDA-Public Use
  Company Number: US-TEVA-386531USA

PATIENT
  Age: 29 Year
  Sex: Female
  Weight: 57.66 kg

DRUGS (2)
  1. PARAGARD 380A [Suspect]
     Indication: CONTRACEPTION
     Route: 015
     Dates: start: 20121217
  2. SINGULAIR [Concomitant]
     Indication: HYPERSENSITIVITY

REACTIONS (4)
  - Convulsion [Recovered/Resolved]
  - Device dislocation [Not Recovered/Not Resolved]
  - Pain [Recovered/Resolved]
  - Dyspareunia [Not Recovered/Not Resolved]
